FAERS Safety Report 6232595-X (Version None)
Quarter: 2009Q2

REPORT INFORMATION
  Report Type: 
  Country: None (occurrence: None)
  Receive Date: 20090617
  Receipt Date: 20090609
  Transmission Date: 20091009
  Serious: Yes (Hospitalization, Other)
  Sender: FDA-Public Use
  Company Number: US-ASTRAZENECA-2009UW14851

PATIENT
  Age: 82 Year
  Sex: Female
  Weight: 75.7 kg

DRUGS (11)
  1. ESOMEPRAZOLE MAGNESIUM [Suspect]
     Route: 048
     Dates: start: 20070322, end: 20090114
  2. CELECOXIB CODE NOT BROKEN [Suspect]
     Indication: OSTEOARTHRITIS
     Route: 048
     Dates: start: 20070322, end: 20090114
  3. DARIFENACIN HYDROBROMIDE [Concomitant]
  4. LASIX [Concomitant]
  5. VITAMIN B6 [Concomitant]
  6. LOTREL [Concomitant]
  7. TOPROL-XL [Concomitant]
  8. LEXAPRO [Concomitant]
  9. ULTRAM [Concomitant]
  10. ROBAXIN [Concomitant]
  11. DARVOCET [Concomitant]
     Dates: start: 20080922

REACTIONS (1)
  - CARDIAC FAILURE CONGESTIVE [None]
